FAERS Safety Report 22379618 (Version 2)
Quarter: 2023Q2

REPORT INFORMATION
  Report Type: Report from Study
  Country: GB (occurrence: GB)
  Receive Date: 20230529
  Receipt Date: 20230531
  Transmission Date: 20230721
  Serious: Yes (Death, Hospitalization)
  Sender: FDA-Public Use
  Company Number: GB-002147023-NVSC2023GB121892

PATIENT
  Sex: Male

DRUGS (1)
  1. OMNITROPE [Suspect]
     Active Substance: SOMATROPIN
     Indication: Hypopituitarism
     Dosage: 0.20 MG, QD ((SANDOZ LTD) 5 CARTRIDGE)
     Route: 058

REACTIONS (3)
  - COVID-19 [Fatal]
  - Lower respiratory tract infection [Fatal]
  - Illness [Unknown]
